FAERS Safety Report 15621124 (Version 12)
Quarter: 2019Q4

REPORT INFORMATION
  Report Type: Report from Study
  Country: BR (occurrence: BR)
  Receive Date: 20181115
  Receipt Date: 20191023
  Transmission Date: 20200122
  Serious: Yes (Congenital Anomaly)
  Sender: FDA-Public Use
  Company Number: BR-VIIV HEALTHCARE LIMITED-BR2018GSK204502

PATIENT
  Age: 7 Day
  Sex: Female
  Weight: 3.76 kg

DRUGS (10)
  1. ZIDOVUDINE. [Suspect]
     Active Substance: ZIDOVUDINE
     Indication: HIV INFECTION
     Dosage: 2 MG/KG,
     Route: 064
     Dates: start: 20181022, end: 20181022
  2. ZIDOVUDINE. [Suspect]
     Active Substance: ZIDOVUDINE
     Dosage: 1 MG/KG, UNK
     Dates: start: 20181022, end: 20181022
  3. RALTEGRAVIR. [Suspect]
     Active Substance: RALTEGRAVIR
     Indication: HIV INFECTION
     Dosage: 800 MG, QD
     Route: 064
     Dates: start: 20180510, end: 20180513
  4. DOLUTEGRAVIR [Suspect]
     Active Substance: DOLUTEGRAVIR
     Indication: HIV INFECTION
     Dosage: 50 MG, QD
     Route: 064
     Dates: start: 20180514, end: 20181021
  5. LAMIVUDINE + TENOFOVIR DISOPROXIL FUMARATE [Suspect]
     Active Substance: LAMIVUDINE\TENOFOVIR DISOPROXIL FUMARATE
     Indication: HIV INFECTION
     Dosage: 600 MG, QD
     Route: 064
     Dates: start: 20180510, end: 20180513
  6. EMTRICITABINE+TENOFOVIR ALAFENAMIDE [Suspect]
     Active Substance: EMTRICITABINE\TENOFOVIR ALAFENAMIDE FUMARATE
     Indication: HIV INFECTION
     Dosage: 225 MG, QD
     Route: 064
     Dates: start: 20180514, end: 20181021
  7. FOLATE [Concomitant]
     Active Substance: FOLATE SODIUM
     Route: 048
  8. FERROUS SULFATE. [Concomitant]
     Active Substance: FERROUS SULFATE
     Dosage: UNK
  9. METRONIDAZOLE. [Concomitant]
     Active Substance: METRONIDAZOLE
  10. IRON ORAL [Concomitant]
     Active Substance: IRON
     Route: 048

REACTIONS (1)
  - Congenital skin dimples [Not Recovered/Not Resolved]

NARRATIVE: CASE EVENT DATE: 20181022
